FAERS Safety Report 23704908 (Version 1)
Quarter: 2024Q2

REPORT INFORMATION
  Report Type: Spontaneous
  Country: US (occurrence: ZA)
  Receive Date: 20240404
  Receipt Date: 20240404
  Transmission Date: 20240716
  Serious: Yes (Other)
  Sender: FDA-Public Use
  Company Number: US-TEVA-VS-3148416

PATIENT
  Age: 69 Year
  Sex: Female

DRUGS (1)
  1. GABAPENTIN [Suspect]
     Active Substance: GABAPENTIN
     Indication: Seizure
     Route: 065

REACTIONS (9)
  - Cerebral haemorrhage [Unknown]
  - Fall [Unknown]
  - Muscle injury [Unknown]
  - Fatigue [Recovering/Resolving]
  - Tremor [Unknown]
  - Patella fracture [Unknown]
  - Eyelid sensory disorder [Unknown]
  - Head injury [Unknown]
  - Hypoaesthesia [Unknown]

NARRATIVE: CASE EVENT DATE: 20230922
